FAERS Safety Report 25598540 (Version 1)
Quarter: 2025Q3

REPORT INFORMATION
  Report Type: Spontaneous
  Country: JP (occurrence: JP)
  Receive Date: 20250723
  Receipt Date: 20250723
  Transmission Date: 20251020
  Serious: Yes (Other)
  Sender: BOEHRINGER INGELHEIM
  Company Number: JP-NBI-2025-BI-083034

PATIENT
  Age: 89 Year
  Sex: Female

DRUGS (1)
  1. JARDIANCE [Suspect]
     Active Substance: EMPAGLIFLOZIN
     Indication: Type 2 diabetes mellitus
     Dates: start: 202503, end: 20250718

REACTIONS (4)
  - Oedema [Unknown]
  - Cystitis [Unknown]
  - Glucose urine [Unknown]
  - Protein total [Unknown]

NARRATIVE: CASE EVENT DATE: 20250715
